FAERS Safety Report 13115775 (Version 1)
Quarter: 2017Q1

REPORT INFORMATION
  Report Type: Other
  Country: GB (occurrence: GB)
  Receive Date: 20170115
  Receipt Date: 20170115
  Transmission Date: 20170428
  Serious: Yes (Other)
  Sender: FDA-Public Use
  Company Number: GB-DEXPHARM-20170018

PATIENT
  Age: 12 Year
  Sex: Female

DRUGS (6)
  1. PROPOFOL. [Concomitant]
     Active Substance: PROPOFOL
     Indication: GENERAL ANAESTHESIA
  2. OMEPRAZOLE. [Suspect]
     Active Substance: OMEPRAZOLE
  3. NITROUS OXIDE. [Interacting]
     Active Substance: NITROUS OXIDE
     Dosage: GASEOUS
  4. OXYGEN. [Concomitant]
     Active Substance: OXYGEN
     Dosage: GASEOUS
  5. METHOTREXATE. [Interacting]
     Active Substance: METHOTREXATE
     Indication: ACUTE UNDIFFERENTIATED LEUKAEMIA
     Route: 037
  6. LEVETIRACETAM. [Suspect]
     Active Substance: LEVETIRACETAM

REACTIONS (4)
  - Leukoencephalopathy [Recovered/Resolved]
  - Drug ineffective [Unknown]
  - Drug interaction [Recovered/Resolved]
  - Neurotoxicity [Recovered/Resolved]
